FAERS Safety Report 6262168-4 (Version None)
Quarter: 2009Q3

REPORT INFORMATION
  Report Type: 
  Country: None (occurrence: None)
  Receive Date: 20090702
  Receipt Date: 20090323
  Transmission Date: 20100115
  Serious: No
  Sender: FDA-Public Use
  Company Number: 1000005011

PATIENT
  Age: 89 Year
  Sex: Male
  Weight: 52.1637 kg

DRUGS (10)
  1. BYSTOLIC [Suspect]
     Dosage: 5 MG (5 MG, 1 IN 1 D), ORAL
     Route: 048
     Dates: start: 20090207, end: 20090209
  2. DIGOXIN [Concomitant]
  3. NITROQUIK [Concomitant]
  4. ALTACE [Concomitant]
  5. ALDACTONE [Concomitant]
  6. ALBUTEROL [Concomitant]
  7. ADVAIR HFA [Concomitant]
  8. FUROSEMIDE [Concomitant]
  9. POTASSIUM CHLORIDE [Concomitant]
  10. PREDNISONE TAB [Concomitant]

REACTIONS (1)
  - VISION BLURRED [None]
